FAERS Safety Report 12706851 (Version 3)
Quarter: 2016Q3

REPORT INFORMATION
  Report Type: Spontaneous
  Country: SE (occurrence: SE)
  Receive Date: 20160901
  Receipt Date: 20160922
  Transmission Date: 20161109
  Serious: Yes (Hospitalization, Disabling, Congenital Anomaly, Other)
  Sender: FDA-Public Use
  Company Number: SE-ACORDA-ACO_127750_2016

PATIENT
  Age: 52 Year
  Sex: Female

DRUGS (2)
  1. QUTENZA [Suspect]
     Active Substance: CAPSAICIN
     Indication: NEURALGIA
     Dosage: UNK UNK, UNKNOWN FREQ.
     Route: 061
  2. FLUOXETINE [Concomitant]
     Active Substance: FLUOXETINE HYDROCHLORIDE
     Indication: PRODUCT USED FOR UNKNOWN INDICATION
     Route: 065

REACTIONS (5)
  - Respiratory tract irritation [Not Recovered/Not Resolved]
  - Cough [Unknown]
  - Throat irritation [Unknown]
  - Respiratory distress [Unknown]
  - Occupational exposure to product [Unknown]

NARRATIVE: CASE EVENT DATE: 20160816
